FAERS Safety Report 7637266 (Version 7)
Quarter: 2013Q4

REPORT INFORMATION
  Report Type: Spontaneous
  Country: US (occurrence: US)
  Receive Date: 20101022
  Receipt Date: 20131105
  Transmission Date: 20140711
  Serious: Yes (Other)
  Sender: FDA-Public Use
  Company Number: US-BAYER-201037649NA

PATIENT
  Age: 15 Year
  Sex: Female
  Weight: 55 kg

DRUGS (9)
  1. YAZ [Suspect]
     Indication: MENSTRUAL DISORDER
     Route: 048
     Dates: start: 200610, end: 20070615
  2. YAZ [Suspect]
     Indication: ABDOMINAL PAIN
     Dosage: UNK
     Route: 048
     Dates: start: 200901, end: 200905
  3. VIRAL VACCINES [Concomitant]
  4. PROTONIX [Concomitant]
  5. PREVACID [Concomitant]
  6. NEXIUM [Concomitant]
  7. PHENERGAN AND CHLORAL HYDRATE [Concomitant]
  8. AMITIZA [Concomitant]
  9. LEVSIN [Concomitant]

REACTIONS (8)
  - Gallbladder disorder [Unknown]
  - Cholecystitis chronic [None]
  - Biliary dyskinesia [None]
  - Nausea [Unknown]
  - Abdominal pain [Unknown]
  - Depression [Unknown]
  - Anxiety [Unknown]
  - Off label use [None]
